FAERS Safety Report 19480849 (Version 1)
Quarter: 2021Q3

REPORT INFORMATION
  Report Type: Spontaneous
  Country: US (occurrence: US)
  Receive Date: 20210701
  Receipt Date: 20210701
  Transmission Date: 20211014
  Serious: No
  Sender: FDA-Public Use
  Company Number: US-TEVA-2021-US-1923215

PATIENT
  Sex: Female

DRUGS (2)
  1. ADIPEX?P [Suspect]
     Active Substance: PHENTERMINE HYDROCHLORIDE
     Indication: DECREASED APPETITE
  2. ADIPEX?P [Suspect]
     Active Substance: PHENTERMINE HYDROCHLORIDE
     Indication: WEIGHT DECREASED
     Route: 048
     Dates: start: 202102

REACTIONS (3)
  - Drug ineffective [Unknown]
  - Weight increased [Unknown]
  - Product formulation issue [Unknown]

NARRATIVE: CASE EVENT DATE: 202102
